FAERS Safety Report 7108811-9 (Version None)
Quarter: 2010Q4

REPORT INFORMATION
  Report Type: 
  Country: None (occurrence: None)
  Receive Date: 20101112
  Receipt Date: 20101103
  Transmission Date: 20110411
  Serious: Yes (Death, Hospitalization, Other)
  Sender: FDA-Public Use
  Company Number: 2010MA002257

PATIENT
  Age: 56 Year
  Sex: Male

DRUGS (8)
  1. CITALOPRAM HYDROBROMIDE [Suspect]
     Indication: DEPRESSION
     Dosage: 20 MG; UNK; PO
     Route: 048
  2. MIRAPREXIN (PRAMIPEXOLE DIHYROCHLORIDE) [Suspect]
     Indication: PARKINSON'S DISEASE
     Dosage: 500 MCG; UNK
     Dates: start: 20090201, end: 20090801
  3. MADOPAR [Suspect]
     Indication: PARKINSON'S DISEASE
     Dosage: (125 MG) (62.5 MG)
     Dates: start: 20060101, end: 20090101
  4. MADOPAR CR (MADOPAR) [Suspect]
     Indication: PARKINSON'S DISEASE
     Dosage: 125 MG, 62.5MG
  5. CLOZAPINE [Concomitant]
  6. DIAZEPAM [Concomitant]
  7. AMITRIPTYLINE [Concomitant]
  8. ROPINIROLE [Concomitant]

REACTIONS (11)
  - ACUTE PSYCHOSIS [None]
  - AGGRESSION [None]
  - COMPLETED SUICIDE [None]
  - DELUSION [None]
  - DEPRESSION [None]
  - HALLUCINATION, AUDITORY [None]
  - OVERDOSE [None]
  - PARANOIA [None]
  - PRESYNCOPE [None]
  - SUICIDE ATTEMPT [None]
  - TREMOR [None]
